FAERS Safety Report 18297654 (Version 1)
Quarter: 2020Q3

REPORT INFORMATION
  Report Type: Spontaneous
  Country: US (occurrence: US)
  Receive Date: 20200923
  Receipt Date: 20200923
  Transmission Date: 20201103
  Serious: No
  Sender: FDA-Public Use
  Company Number: US-DRREDDYS-USA/USA/20/0127002

PATIENT
  Sex: Male

DRUGS (1)
  1. DOANS EXTRA STRENGTH [Suspect]
     Active Substance: MAGNESIUM SALICYLATE
     Indication: INTERVERTEBRAL DISC PROTRUSION
     Route: 048

REACTIONS (2)
  - Product quality issue [Unknown]
  - Drug ineffective [Unknown]
